FAERS Safety Report 12374480 (Version 1)
Quarter: 2016Q2

REPORT INFORMATION
  Report Type: Spontaneous
  Country: US (occurrence: None)
  Receive Date: 20160516
  Receipt Date: 20160516
  Transmission Date: 20160815
  Serious: Yes (Other)
  Sender: FDA-Public Use
  Company Number: None

PATIENT
  Age: 23 Year
  Sex: Male
  Weight: 62.14 kg

DRUGS (1)
  1. IMODIUM [Suspect]
     Active Substance: LOPERAMIDE HYDROCHLORIDE
     Indication: DIARRHOEA
     Route: 048
     Dates: start: 20160512, end: 20160513

REACTIONS (4)
  - Constipation [None]
  - Haematochezia [None]
  - Faeces soft [None]
  - Gastrointestinal disorder [None]

NARRATIVE: CASE EVENT DATE: 20160513
